FAERS Safety Report 19057249 (Version 1)
Quarter: 2021Q1

REPORT INFORMATION
  Report Type: Spontaneous
  Country: US (occurrence: US)
  Receive Date: 20210325
  Receipt Date: 20210325
  Transmission Date: 20210420
  Serious: No
  Sender: FDA-Public Use
  Company Number: US-MYLANLABS-2021M1014001

PATIENT
  Sex: Male
  Weight: 107 kg

DRUGS (4)
  1. SEMGLEE [Suspect]
     Active Substance: INSULIN GLARGINE
     Dosage: UNK
     Route: 058
  2. ADMELOG [Concomitant]
     Active Substance: INSULIN LISPRO
     Dosage: UNK
  3. LANTUS [Concomitant]
     Active Substance: INSULIN GLARGINE
  4. SEMGLEE [Suspect]
     Active Substance: INSULIN GLARGINE
     Indication: DIABETES MELLITUS
     Dosage: 76 UNITS, BEDTIME
     Route: 058

REACTIONS (3)
  - Injection site atrophy [Unknown]
  - Device failure [Not Recovered/Not Resolved]
  - Blood pressure abnormal [Unknown]
